FAERS Safety Report 25354494 (Version 1)
Quarter: 2025Q2

REPORT INFORMATION
  Report Type: Spontaneous
  Country: JP (occurrence: JP)
  Receive Date: 20250523
  Receipt Date: 20250523
  Transmission Date: 20250717
  Serious: Yes (Other)
  Sender: TAKEDA
  Company Number: JP-TAKEDA-2025TUS048644

PATIENT
  Age: 2 Week
  Sex: Female

DRUGS (1)
  1. LIALDA [Suspect]
     Active Substance: MESALAMINE
     Indication: Product used for unknown indication
     Route: 064

REACTIONS (3)
  - Cytopenia [Unknown]
  - Hydrops foetalis [Unknown]
  - Foetal exposure during pregnancy [Unknown]
